FAERS Safety Report 4768386-6 (Version None)
Quarter: 2005Q3

REPORT INFORMATION
  Report Type: 
  Country: None (occurrence: None)
  Receive Date: 20050906
  Receipt Date: 20050524
  Transmission Date: 20060218
  Serious: No
  Sender: FDA-Public Use
  Company Number: 2004-BP-11167BP

PATIENT
  Age: 54 Year
  Sex: Female

DRUGS (8)
  1. SPIRIVA [Suspect]
     Indication: CHRONIC OBSTRUCTIVE PULMONARY DISEASE
     Dosage: 18 MCG (18 MCG) IH
     Route: 055
     Dates: start: 20040901
  2. SPIRIVA [Suspect]
  3. SEREVENT [Concomitant]
  4. GLUCOPHAGE [Concomitant]
  5. METFORMIN HCL [Concomitant]
  6. LISINOPRIL [Concomitant]
  7. WARFARIN SODIUM [Concomitant]
  8. GLIPIZIDE [Concomitant]

REACTIONS (1)
  - WHEEZING [None]
